FAERS Safety Report 17216888 (Version 2)
Quarter: 2020Q1

REPORT INFORMATION
  Report Type: Spontaneous
  Country: IT (occurrence: IT)
  Receive Date: 20191231
  Receipt Date: 20200116
  Transmission Date: 20200409
  Serious: Yes (Other)
  Sender: FDA-Public Use
  Company Number: IT-AMGEN-ITASP2019214343

PATIENT

DRUGS (6)
  1. MELPHALAN. [Suspect]
     Active Substance: MELPHALAN
     Indication: PLASMA CELL MYELOMA
     Dosage: 200 MILLIGRAM (HIGH DOSES)
     Route: 065
  2. LEVOFLOXACIN. [Concomitant]
     Active Substance: LEVOFLOXACIN
     Indication: PROPHYLAXIS
     Dosage: 500 MILLIGRAM, QD (DAY 0)
     Route: 048
  3. ACYCLOVIR [ACICLOVIR] [Concomitant]
     Active Substance: ACYCLOVIR
     Indication: PROPHYLAXIS
     Dosage: 800 MILLIGRAM, BID (DAY 3 TO DAY 90)
     Route: 048
  4. TRIMETHOPRIM SULFAMETHOXAZOLE [Concomitant]
     Active Substance: SULFAMETHOXAZOLE\TRIMETHOPRIM
     Indication: ANTIFUNGAL PROPHYLAXIS
     Dosage: UNK (2 TO 3 WEEKS WEEKLY)
     Route: 065
  5. FILGRASTIM [Suspect]
     Active Substance: FILGRASTIM
     Indication: HAEMATOPOIETIC STEM CELL MOBILISATION
     Dosage: 5 MICROGRAM/KILOGRAM (DAY 5)
     Route: 058
  6. MELPHALAN. [Suspect]
     Active Substance: MELPHALAN
     Indication: STEM CELL TRANSPLANT

REACTIONS (6)
  - Febrile neutropenia [Unknown]
  - Mucosal inflammation [Unknown]
  - Neutropenia [Unknown]
  - Diarrhoea [Unknown]
  - Bone pain [Unknown]
  - Infection [Unknown]
